FAERS Safety Report 4558267-5 (Version None)
Quarter: 2005Q1

REPORT INFORMATION
  Report Type: 
  Country: None (occurrence: None)
  Receive Date: 20050121
  Receipt Date: 20050111
  Transmission Date: 20050727
  Serious: Yes (Other)
  Sender: FDA-Public Use
  Company Number: FR-BRISTOL-MYERS SQUIBB COMPANY-12829495

PATIENT
  Sex: Female

DRUGS (5)
  1. VIDEX [Suspect]
     Indication: HIV INFECTION
     Route: 048
  2. RETROVIR [Suspect]
     Indication: PROPHYLAXIS
     Route: 042
     Dates: start: 20041209, end: 20041209
  3. VIRACEPT [Suspect]
     Indication: HIV INFECTION
  4. RETROVIR [Suspect]
     Indication: HIV INFECTION
  5. TRANQUITAL [Suspect]

REACTIONS (5)
  - CAESAREAN SECTION [None]
  - DRUG EXPOSURE DURING PREGNANCY [None]
  - NORMAL NEWBORN [None]
  - STREPTOCOCCAL INFECTION [None]
  - TWIN PREGNANCY [None]
